FAERS Safety Report 25871539 (Version 2)
Quarter: 2025Q4

REPORT INFORMATION
  Report Type: Spontaneous
  Country: VN (occurrence: VN)
  Receive Date: 20251001
  Receipt Date: 20251021
  Transmission Date: 20260118
  Serious: Yes (Other)
  Sender: NOVARTIS
  Company Number: VN-002147023-NVSC2025VN151716

PATIENT
  Sex: Female

DRUGS (1)
  1. LETROZOLE [Suspect]
     Active Substance: LETROZOLE
     Indication: Endometrial ablation
     Dosage: 5 MG, QD
     Route: 065

REACTIONS (3)
  - Ectopic pregnancy [Unknown]
  - Maternal exposure before pregnancy [Unknown]
  - Off label use [Unknown]
